FAERS Safety Report 4300857-9 (Version None)
Quarter: 2004Q1

REPORT INFORMATION
  Report Type: 
  Country: None (occurrence: None)
  Receive Date: 20040220
  Receipt Date: 20020904
  Transmission Date: 20041129
  Serious: Yes (Hospitalization, Other)
  Sender: FDA-Public Use
  Company Number: WAES 0209USA00352

PATIENT
  Age: 58 Year
  Sex: Female
  Weight: 77 kg

DRUGS (9)
  1. PREMARIN [Concomitant]
     Indication: HORMONE REPLACEMENT THERAPY
  2. ESTRATAB [Concomitant]
  3. MENEST [Concomitant]
  4. GARLIC EXTRACT [Concomitant]
     Indication: HYPERCHOLESTEROLAEMIA
  5. SYNTHROID [Concomitant]
     Indication: HYPOTHYROIDISM
  6. METHOTREXATE [Concomitant]
     Dates: start: 19940101
  7. VIOXX [Suspect]
     Indication: PAIN IN EXTREMITY
     Route: 048
     Dates: start: 20010830, end: 20010901
  8. ARMOUR THYROID TABLETS [Concomitant]
  9. TRAZODONE HYDROCHLORIDE [Concomitant]
     Indication: INSOMNIA

REACTIONS (14)
  - ARTHRALGIA [None]
  - ATRIAL FIBRILLATION [None]
  - CORNEAL DEPOSITS [None]
  - DIZZINESS [None]
  - DYSPNOEA [None]
  - HAEMATOMA [None]
  - HAEMATURIA [None]
  - HYPERTENSION [None]
  - HYPERTENSIVE CRISIS [None]
  - INJURY [None]
  - MUSCULOSKELETAL DISORDER [None]
  - OEDEMA PERIPHERAL [None]
  - RENAL CYST [None]
  - TRANSIENT ISCHAEMIC ATTACK [None]
